FAERS Safety Report 4474001-1 (Version None)
Quarter: 2004Q4

REPORT INFORMATION
  Report Type: 
  Country: None (occurrence: None)
  Receive Date: 20041008
  Receipt Date: 20040921
  Transmission Date: 20050328
  Serious: Yes (Death, Other)
  Sender: FDA-Public Use
  Company Number: USA040978999

PATIENT
  Age: 62 Year
  Sex: Female

DRUGS (9)
  1. GEMZAR [Suspect]
     Indication: BREAST CANCER METASTATIC
     Dosage: 2000 MG
     Dates: start: 20040420, end: 20040812
  2. PROTONIX [Concomitant]
  3. COMBIVENT [Concomitant]
  4. FLOVENT [Concomitant]
  5. SYNTHROID [Concomitant]
  6. LORAZEPAM [Concomitant]
  7. LASIX [Concomitant]
  8. POTASSIUM [Concomitant]
  9. STOOL SOFTENER (DOCUSATE SODIUM) [Concomitant]

REACTIONS (2)
  - HEPATOTOXICITY [None]
  - WHITE BLOOD CELL COUNT DECREASED [None]
